FAERS Safety Report 4614183-1 (Version None)
Quarter: 2005Q1

REPORT INFORMATION
  Report Type: 
  Country: None (occurrence: None)
  Receive Date: 20050316
  Receipt Date: 20050307
  Transmission Date: 20050727
  Serious: Yes (Disabling)
  Sender: FDA-Public Use
  Company Number: 2005CG00316

PATIENT
  Sex: Female

DRUGS (2)
  1. ZOMIG-ZMT [Suspect]
     Indication: MIGRAINE
     Dosage: 2.5 MG PRN TPL
     Route: 061
     Dates: start: 20040812, end: 20041002
  2. RELPAX [Suspect]
     Indication: MIGRAINE
     Dosage: 20 MG ORN TPL
     Route: 061
     Dates: start: 20040526

REACTIONS (2)
  - DRUG EXPOSURE DURING PREGNANCY [None]
  - HAEMANGIOMA CONGENITAL [None]
